FAERS Safety Report 15532730 (Version 1)
Quarter: 2018Q4

REPORT INFORMATION
  Report Type: Spontaneous
  Country: GB (occurrence: GB)
  Receive Date: 20181019
  Receipt Date: 20181019
  Transmission Date: 20190205
  Serious: Yes (Other)
  Sender: FDA-Public Use
  Company Number: PHHY2018GB129435

PATIENT
  Age: 7 Year
  Sex: Male

DRUGS (1)
  1. AMOXICILLIN. [Suspect]
     Active Substance: AMOXICILLIN
     Indication: LOWER RESPIRATORY TRACT INFECTION
     Dosage: 15 ML, QD (250MG /5ML)
     Route: 048
     Dates: start: 20180430, end: 20180505

REACTIONS (2)
  - Psychomotor hyperactivity [Recovered/Resolved]
  - Aggression [Recovered/Resolved]
